FAERS Safety Report 18278580 (Version 1)
Quarter: 2020Q3

REPORT INFORMATION
  Report Type: Spontaneous
  Country: MX (occurrence: MX)
  Receive Date: 20200917
  Receipt Date: 20200917
  Transmission Date: 20201103
  Serious: Yes (Other)
  Sender: FDA-Public Use
  Company Number: NVSC2020MX252634

PATIENT
  Age: 77 Year
  Sex: Female

DRUGS (1)
  1. ACLASTA [Suspect]
     Active Substance: ZOLEDRONIC ACID
     Indication: OSTEOPOROSIS
     Dosage: 5 MG, UNKNOWN
     Route: 065
     Dates: start: 2019

REACTIONS (4)
  - Diabetes mellitus [Unknown]
  - Depression [Unknown]
  - Bone pain [Unknown]
  - Hypertension [Unknown]
